FAERS Safety Report 7861568 (Version 7)
Quarter: 2012Q4

REPORT INFORMATION
  Report Type: 
  Country: US (occurrence: US)
  Receive Date: 20110318
  Receipt Date: 20121004
  Transmission Date: 20130627
  Serious: Yes (Hospitalization, Other)
  Sender: FDA-Public Use
  Company Number: US-PFIZER INC-2011056922

PATIENT
  Age: 59 Year
  Sex: Female

DRUGS (69)
  1. DILANTIN [Suspect]
     Indication: CONVULSION
     Dosage: 300 mg, 1x/day
     Route: 048
     Dates: start: 20101019, end: 20101218
  2. DILANTIN [Suspect]
     Dosage: 200 mg, 2x/day
     Route: 048
     Dates: start: 20101020, end: 20110109
  3. CEREBYX [Concomitant]
     Dosage: 100 mg, 3x/day (every 8 hours)
     Route: 042
     Dates: start: 20101019, end: 20101218
  4. NOVOLIN R [Concomitant]
     Dosage: every four hours
     Route: 058
     Dates: start: 20101019, end: 20101218
  5. PEPCID [Concomitant]
     Dosage: 20 mg, every 12 hr
     Route: 048
     Dates: start: 20101019, end: 20101219
  6. PEPCID [Concomitant]
     Dosage: 20 mg, 2x/day
     Route: 048
     Dates: start: 20101020, end: 20110121
  7. DECADRON [Concomitant]
     Dosage: 4 mg, 4x/day
     Route: 042
     Dates: start: 20101019, end: 20101218
  8. MAGNESIUM GLUCONATE [Concomitant]
     Dosage: 500 mg, 4x/day (every 6 hours)
     Route: 048
     Dates: start: 20101019, end: 20110117
  9. LOPRESSOR [Concomitant]
     Dosage: 50 mg, 2x/day
     Route: 048
     Dates: start: 20101019, end: 20110117
  10. MULTIVITAMINS [Concomitant]
     Dosage: one tablet, daily
     Route: 048
     Dates: start: 20101019, end: 20110120
  11. TYLENOL [Concomitant]
     Indication: HEADACHE
     Dosage: 650 mg, every four hours/prn
     Route: 048
     Dates: start: 20101019, end: 20110121
  12. TYLENOL [Concomitant]
     Indication: PAIN
  13. REGLAN [Concomitant]
     Indication: NAUSEA
     Dosage: 10 mg, every 6 hr/prn
     Route: 042
     Dates: start: 20101019, end: 20101218
  14. APRESOLINE [Concomitant]
     Dosage: 10 mg,every hr/prn
     Route: 042
     Dates: start: 20101019, end: 20101218
  15. NORMODYNE [Concomitant]
     Dosage: Q20M
     Route: 042
     Dates: start: 20101019, end: 20110117
  16. ATIVAN [Concomitant]
     Dosage: 0.5 mg, 4x/day/prn
     Dates: start: 20101019, end: 20110117
  17. ATIVAN [Concomitant]
     Dosage: 1 mg, 1x/day
     Route: 048
     Dates: start: 20101109
  18. ALDACTONE [Concomitant]
     Dosage: 50 mg, daily
     Route: 048
     Dates: start: 20101020, end: 20110110
  19. PRILOSEC [Concomitant]
     Dosage: 20 mg, after break fast
     Route: 048
     Dates: start: 20101020, end: 20110118
  20. PERIDEX [Concomitant]
     Dosage: as needed
     Dates: start: 20101105, end: 20110117
  21. ISOPTO TEARS [Concomitant]
     Dosage: UNK, every 4 hr/prn
     Dates: start: 20101105, end: 20110117
  22. CHRONULAC [Concomitant]
     Dosage: 15 ml, 3x/day
     Route: 048
     Dates: start: 20101105, end: 20110104
  23. BENADRYL [Concomitant]
     Indication: PRURITUS
     Dosage: 25 mg, every 2 hrs/prn
     Route: 042
     Dates: start: 20101105, end: 20110117
  24. BENADRYL [Concomitant]
     Indication: URTICARIA
  25. NORCO [Concomitant]
     Indication: PAIN
     Dosage: 5/325 mg   every 4 hr/prn
     Route: 048
     Dates: start: 20101105, end: 20101128
  26. NORCO [Concomitant]
     Dosage: 7.5/325 1-2 tablets every 4 hours
     Route: 048
     Dates: start: 20101105, end: 20101115
  27. PROMETHAZINE [Concomitant]
     Indication: NAUSEA
     Dosage: 25 mg,  every 4 hours/prn
     Route: 042
     Dates: start: 20101105, end: 20110118
  28. TESSALON [Concomitant]
     Indication: COUGH
     Dosage: 1-2 capsules three times daily
     Route: 048
     Dates: start: 20101105, end: 20110117
  29. ROBITUSSIN WITH CODEINE [Concomitant]
     Indication: COUGH
     Dosage: 10 ml, every 4 hr
     Route: 048
     Dates: start: 20101105, end: 20110117
  30. PEPTO-BISMOL [Concomitant]
     Dosage: 20- 30 ml
     Dates: start: 20101105, end: 20110117
  31. LOPERAMIDE [Concomitant]
     Indication: DIARRHOEA
     Dosage: 2 mg, every 4 hr
     Route: 048
     Dates: start: 20101105, end: 20110117
  32. ALTEPLASE [Concomitant]
     Dosage: 2 mg, UNK
     Route: 042
     Dates: start: 20101105, end: 20110117
  33. DILAUDID [Concomitant]
     Indication: PAIN
     Dosage: 2-4 mg, every 3 hr as needed
     Route: 042
     Dates: start: 20101105, end: 20101115
  34. MAGNESIUM SULFATE [Concomitant]
     Dosage: 1 g, as needed
     Route: 042
     Dates: start: 20101106, end: 20110117
  35. MAGNESIUM SULFATE [Concomitant]
     Dosage: 2 g, as needed
     Route: 042
     Dates: start: 20101106, end: 20110117
  36. AMBIEN [Concomitant]
     Indication: SLEEP DISORDER
     Dosage: 5 mg, at bed time 1-2 tablets
     Route: 048
     Dates: start: 20101105, end: 20110104
  37. DARVOCET-N [Concomitant]
     Indication: PAIN
     Dosage: 1-2 tablets every 4 hrs
     Route: 048
     Dates: start: 20101110, end: 20101129
  38. MORPHINE [Concomitant]
     Indication: PAIN
     Dosage: 4 mg, every 3 hours/prn
     Route: 042
     Dates: start: 20101110, end: 20101129
  39. ZOFRAN [Concomitant]
     Indication: NAUSEA
     Dosage: 32 mg, 1x/day (every 24 hours as needed)
     Route: 042
     Dates: start: 20101019, end: 20110118
  40. MILK OF MAGNESIA [Concomitant]
     Indication: CONSTIPATION
     Dosage: 30 ml, at bed time/prn
     Route: 048
     Dates: start: 20101110, end: 20110118
  41. RESTORIL [Concomitant]
     Indication: SLEEP DISORDER
     Dosage: 15 mg, at bed time /prn
     Route: 048
     Dates: start: 20101110, end: 20110118
  42. MAALOX [Concomitant]
     Indication: DYSPEPSIA
     Dosage: 15 ml,every 3 hr/prn
     Route: 048
     Dates: start: 20101110, end: 20110118
  43. PRAVACHOL [Concomitant]
     Dosage: 40 mg, at bed time
     Route: 048
     Dates: start: 20101105, end: 20110109
  44. PROCTOFOAM [Concomitant]
     Dosage: every 6 hr/prn
     Dates: start: 20101105, end: 20110117
  45. VANCOMYCIN [Concomitant]
     Dosage: 1000 mg,every 12 hr
     Route: 042
     Dates: start: 20101105, end: 20101124
  46. LEVAQUIN [Concomitant]
     Dosage: 750 mg,daily
     Route: 042
     Dates: start: 20101105, end: 20101119
  47. OCEAN [Concomitant]
     Dosage: 1 spray every 4 hr/prn
     Dates: start: 20101105, end: 20110117
  48. DECADRON [Concomitant]
     Dosage: 2 mg, 2x/day (2 mg tablets one tablet twice daily)
     Route: 048
     Dates: start: 20101021, end: 20110104
  49. DECADRON [Concomitant]
     Dosage: 2 mg, 1x/day (2 mg tablets one tablet daily at breakfast)
     Route: 048
     Dates: start: 20101119, end: 20110118
  50. DECADRON [Concomitant]
     Dosage: 4 mg, 4x/day (4 mg tablets one tablet every 6 hrs with food)
     Route: 048
     Dates: start: 20101107, end: 20110106
  51. DECADRON [Concomitant]
     Dosage: 4 mg, 2x/day (4 mg tablets one tablet twice daily with food)
     Route: 048
     Dates: start: 20101109, end: 20101111
  52. DECADRON [Concomitant]
     Dosage: 4 mg tablets one tablet daily with food
     Route: 048
     Dates: start: 20101112, end: 20101114
  53. DECADRON [Concomitant]
     Dosage: 4 mg tablets half tablet daily with food
     Route: 048
     Dates: start: 20101115, end: 20110121
  54. DOMEBORO [Concomitant]
     Dosage: 1 packet as needed
     Dates: start: 20101105, end: 20110117
  55. PHENERGAN [Concomitant]
     Indication: NAUSEA
     Dosage: 25 mg tablets 25 mg to 50 mg every 4 hrs as needed
     Route: 048
     Dates: start: 20101105, end: 20110117
  56. PHENERGAN [Concomitant]
     Dosage: 25 mg, every 3 hours as needed
     Route: 048
     Dates: start: 20101119, end: 20110118
  57. SLOW-MAG [Concomitant]
     Dosage: 192 mg, as needed (64 mg tablets)
     Route: 048
     Dates: start: 20101106, end: 20110117
  58. SLOW-MAG [Concomitant]
     Dosage: 128 mg, as needed (64 mg tablets)
     Route: 048
     Dates: start: 20101106, end: 20110117
  59. HEPARIN [Concomitant]
     Dosage: UNK
     Route: 042
     Dates: start: 20101109, end: 20101109
  60. LIDOCAINE [Concomitant]
     Dosage: 10ml
     Dates: start: 20101111
  61. LIDOCAINE [Concomitant]
     Dosage: 20ml
     Dates: start: 20101111
  62. VERSED [Concomitant]
     Dosage: 5 mg vial
     Dates: start: 20101111
  63. SUBLIMAZE [Concomitant]
     Dosage: 100mcg/2 ml ampule at 200 mcg of an unknown frequency
     Dates: start: 20101111
  64. PEPCID [Concomitant]
     Dosage: 20 mg, 2x/day (every 12 hours)
     Route: 042
     Dates: start: 20101019, end: 20101218
  65. THERAGRAN-M [Concomitant]
     Dosage: one tablet daily with food
     Route: 048
     Dates: start: 20101105, end: 20110104
  66. K-DUR [Concomitant]
     Dosage: 20 meq tablets as needed
     Route: 048
     Dates: start: 20101106, end: 20110117
  67. POTASSIUM CHLORIDE [Concomitant]
     Dosage: 20 meq/15 ml as needed
     Route: 042
     Dates: start: 20101106, end: 20110117
  68. POTASSIUM CHLORIDE [Concomitant]
     Dosage: 10 meq/50 ml 10 meq as needed
     Route: 042
     Dates: start: 20101106, end: 20110117
  69. ZOLEDRONIC ACID [Concomitant]
     Dosage: 4 mg daily,
     Route: 042
     Dates: start: 20101104, end: 20110824

REACTIONS (1)
  - Stevens-Johnson syndrome [Recovered/Resolved]
